FAERS Safety Report 5582380-7 (Version None)
Quarter: 2008Q1

REPORT INFORMATION
  Report Type: 
  Country: None (occurrence: None)
  Receive Date: 20080104
  Receipt Date: 20080103
  Transmission Date: 20080703
  Serious: Yes (Hospitalization, Other)
  Sender: FDA-Public Use
  Company Number: US-ABBOTT-07P-163-0415605-00

PATIENT
  Sex: Female
  Weight: 80.812 kg

DRUGS (12)
  1. HUMIRA [Suspect]
     Indication: RHEUMATOID ARTHRITIS
     Route: 058
     Dates: start: 20040101, end: 20040501
  2. MELOXICAM [Concomitant]
     Indication: RHEUMATOID ARTHRITIS
     Route: 048
  3. METHOTREXATE [Concomitant]
     Indication: RHEUMATOID ARTHRITIS
     Route: 048
  4. FEXOFENADINE [Concomitant]
     Indication: HYPERSENSITIVITY
     Route: 048
  5. RABEPRAZOLE SODIUM [Concomitant]
     Indication: GASTROOESOPHAGEAL REFLUX DISEASE
     Route: 048
  6. FAMOTIDINE [Concomitant]
     Indication: GASTROOESOPHAGEAL REFLUX DISEASE
     Route: 048
  7. DARIFENACIN HYDROBROMIDE [Concomitant]
     Indication: URINARY TRACT DISORDER
     Route: 048
  8. CITALOPRAM HYDROBROMIDE [Concomitant]
     Indication: DRUG USE FOR UNKNOWN INDICATION
     Route: 048
  9. METAXALONE [Concomitant]
     Indication: MUSCLE RELAXANT THERAPY
     Route: 048
  10. MONTELUKAST SODIUM [Concomitant]
     Indication: ASTHMA
     Route: 048
  11. FOLIC ACID [Concomitant]
     Indication: RHEUMATOID ARTHRITIS
     Route: 048
  12. TRIAMCINOLONE ACETONIDE [Concomitant]
     Indication: HYPERSENSITIVITY
     Dosage: 4 SPRAYS--TWO SPRAYS IN EACH NOSTRIL/ FOUR SPRAYS/ TWO SPRAYS EACH NOSTRIL
     Route: 045

REACTIONS (5)
  - ARTHRALGIA [None]
  - BONE DISORDER [None]
  - CHOLELITHIASIS [None]
  - PULMONARY EMBOLISM [None]
  - VOMITING [None]
